FAERS Safety Report 5065790-6 (Version None)
Quarter: 2006Q3

REPORT INFORMATION
  Report Type: 
  Country: None (occurrence: None)
  Receive Date: 20060719
  Receipt Date: 20060203
  Transmission Date: 20061208
  Serious: No
  Sender: FDA-Public Use
  Company Number: 06P-163-0322681-00

PATIENT
  Age: 38 Year
  Sex: Male

DRUGS (17)
  1. NORVIR [Suspect]
     Indication: HIV INFECTION
     Dosage: 100 MG, 4 IN 1 D, PER ORAL
     Route: 048
     Dates: start: 20051130, end: 20060111
  2. APTIVUS [Suspect]
     Indication: HIV INFECTION
     Dosage: 250 MG, 4 IN 1 D, PER ORAL
     Route: 048
     Dates: start: 20051130, end: 20060111
  3. FUZEON [Suspect]
     Indication: HIV INFECTION
     Dosage: 90 MG, 2 IN 1 D, SUBCUTANEOUS
     Route: 058
     Dates: start: 20051130, end: 20060111
  4. TRUVADA [Suspect]
     Indication: HIV INFECTION
     Dosage: 1 IN 1 D, PER ORAL
     Route: 048
     Dates: start: 20051130, end: 20060111
  5. EPYTHROPOIETIN [Concomitant]
  6. TESTOSTERONE [Concomitant]
  7. NICOTINIC ACID [Concomitant]
  8. FERROUS SULFATE TAB [Concomitant]
  9. FENOFIBRATE [Concomitant]
  10. ZOLPIDEM TARTRATE [Concomitant]
  11. ACYCLOVIR [Concomitant]
  12. ESOMEPRAZOLE MAGNESIUM [Concomitant]
  13. DRONABINOL [Concomitant]
  14. BACTRIUM [Concomitant]
  15. ZOVIRAX [Concomitant]
  16. CETIRIZINE HCL [Concomitant]
  17. FLUOXETINE HYDROCHLORIDE [Concomitant]

REACTIONS (4)
  - HYPERSENSITIVITY [None]
  - OESOPHAGEAL CANDIDIASIS [None]
  - PYREXIA [None]
  - STEVENS-JOHNSON SYNDROME [None]
